FAERS Safety Report 22167950 (Version 6)
Quarter: 2025Q4

REPORT INFORMATION
  Report Type: Report from Study
  Country: US (occurrence: US)
  Receive Date: 20230403
  Receipt Date: 20251218
  Transmission Date: 20260118
  Serious: No
  Sender: PFIZER
  Company Number: US-PFIZER INC-PV202300055924

PATIENT
  Age: 3 Year
  Sex: Male

DRUGS (1)
  1. GENOTROPIN [Suspect]
     Active Substance: SOMATROPIN
     Dosage: (UNKNOWN DOSE) MG, DAILY

REACTIONS (4)
  - Device leakage [Unknown]
  - Device information output issue [Unknown]
  - Device defective [Unknown]
  - Poor quality device used [Unknown]
